FAERS Safety Report 5033756-8 (Version None)
Quarter: 2006Q2

REPORT INFORMATION
  Report Type: 
  Country: None (occurrence: None)
  Receive Date: 20060620
  Receipt Date: 20060609
  Transmission Date: 20061013
  Serious: Yes (Hospitalization, Other)
  Sender: FDA-Public Use
  Company Number: 2006-DE-02989GD

PATIENT
  Age: 31 Year
  Sex: Male

DRUGS (4)
  1. PHENYLBUTAZONE (PHENYLBUTAZONE) [Suspect]
     Dosage: PO
     Route: 048
  2. DEXAMETHASONE [Suspect]
     Dosage: PO
     Route: 048
  3. TRIMETHOPRIM + SULFAMETHOXAZOLE [Suspect]
  4. CHINESE TRADITIONAL MEDICINE (HERBAL PREPARATION) [Suspect]
     Indication: NECK PAIN
     Dosage: PO
     Route: 048

REACTIONS (11)
  - CONDITION AGGRAVATED [None]
  - DERMATITIS [None]
  - DRUG HYPERSENSITIVITY [None]
  - FACE OEDEMA [None]
  - FLUSHING [None]
  - HEPATITIS [None]
  - LYMPHADENOPATHY [None]
  - LYMPHOCYTE PERCENTAGE DECREASED [None]
  - MONOCYTOSIS [None]
  - PHARMACEUTICAL PRODUCT COMPLAINT [None]
  - PSORIASIS [None]
